FAERS Safety Report 19965537 (Version 1)
Quarter: 2021Q4

REPORT INFORMATION
  Report Type: Spontaneous
  Country: US (occurrence: US)
  Receive Date: 20211018
  Receipt Date: 20211018
  Transmission Date: 20220303
  Serious: Yes (Other)
  Sender: FDA-Public Use
  Company Number: US-TEVA-2021-US-1965410

PATIENT
  Age: 65 Year
  Sex: Female
  Weight: 74.39 kg

DRUGS (2)
  1. PROVIGIL [Suspect]
     Active Substance: MODAFINIL
     Indication: Poor quality sleep
     Dosage: STARTED ROUGHLY THREE OR MORE YEARS AGO
     Route: 065
  2. PROVIGIL [Suspect]
     Active Substance: MODAFINIL
     Dosage: 300 MG DAILY
     Route: 065

REACTIONS (9)
  - Multiple sclerosis [Unknown]
  - Fatigue [Not Recovered/Not Resolved]
  - Overweight [Unknown]
  - Gait disturbance [Unknown]
  - Hypoaesthesia [Unknown]
  - Breast disorder [Unknown]
  - Memory impairment [Unknown]
  - Diarrhoea [Unknown]
  - Drug ineffective [Unknown]
